FAERS Safety Report 23204799 (Version 1)
Quarter: 2023Q4

REPORT INFORMATION
  Report Type: Report from Study
  Country: BR (occurrence: BR)
  Receive Date: 20231120
  Receipt Date: 20231120
  Transmission Date: 20240109
  Serious: Yes (Hospitalization)
  Sender: FDA-Public Use
  Company Number: BR-002147023-NVSC2023BR245757

PATIENT
  Age: 86 Year
  Sex: Male

DRUGS (1)
  1. ENTRESTO [Suspect]
     Active Substance: SACUBITRIL\VALSARTAN
     Indication: Product used for unknown indication
     Dosage: 50 MG, QD (THROUGH THE MOUTH)
     Route: 048
     Dates: start: 202307

REACTIONS (8)
  - Limb injury [Unknown]
  - Inflammation of wound [Unknown]
  - Malnutrition [Unknown]
  - Renal disorder [Unknown]
  - Dehydration [Not Recovered/Not Resolved]
  - Diarrhoea [Unknown]
  - Dysbiosis [Unknown]
  - Product use issue [Unknown]

NARRATIVE: CASE EVENT DATE: 20230901
